FAERS Safety Report 17672951 (Version 1)
Quarter: 2020Q2

REPORT INFORMATION
  Report Type: Spontaneous
  Country: HR (occurrence: HR)
  Receive Date: 20200415
  Receipt Date: 20200415
  Transmission Date: 20200713
  Serious: Yes (Other)
  Sender: FDA-Public Use
  Company Number: HR-ANIPHARMA-2018-HR-000013

PATIENT
  Sex: Female
  Weight: 69 kg

DRUGS (4)
  1. ANASTROZOLE. [Suspect]
     Active Substance: ANASTROZOLE
     Indication: BREAST CANCER FEMALE
     Dosage: 1 MG DAILY
     Route: 048
     Dates: start: 20180724
  2. IRUMED [Concomitant]
     Dosage: 10 MG DAILY
     Route: 048
  3. IBUPROFEN. [Concomitant]
     Active Substance: IBUPROFEN
     Route: 065
  4. RIBOCICLIB. [Suspect]
     Active Substance: RIBOCICLIB
     Dosage: 600 MG DAILY / 600 MG DAILY / 600 MG DAILY
     Route: 048
     Dates: start: 20180814

REACTIONS (9)
  - Drug interaction [Recovered/Resolved]
  - Blood alkaline phosphatase increased [Unknown]
  - Blood lactate dehydrogenase increased [Unknown]
  - Hepatic lesion [Recovered/Resolved]
  - Transaminases increased [Unknown]
  - Alanine aminotransferase decreased [Unknown]
  - Alanine aminotransferase increased [Unknown]
  - Aspartate aminotransferase decreased [Unknown]
  - Gamma-glutamyltransferase decreased [Unknown]

NARRATIVE: CASE EVENT DATE: 20180911
